FAERS Safety Report 4266244-7 (Version None)
Quarter: 2004Q1

REPORT INFORMATION
  Report Type: 
  Country: None (occurrence: None)
  Receive Date: 20040106
  Receipt Date: 20031218
  Transmission Date: 20041129
  Serious: Yes (Death)
  Sender: FDA-Public Use
  Company Number: 12462065

PATIENT
  Sex: Male

DRUGS (2)
  1. SKENAN PROL RELEASE GRAN   (MORPHINE SULFATE) [Suspect]
     Indication: TOOTHACHE
     Route: 055
  2. REVIA [Suspect]
     Indication: ALCOHOL WITHDRAWAL SYNDROME
     Route: 048

REACTIONS (2)
  - ACUTE PULMONARY OEDEMA [None]
  - MEDICATION ERROR [None]
